FAERS Safety Report 23472760 (Version 1)
Quarter: 2024Q1

REPORT INFORMATION
  Report Type: Spontaneous
  Country: GB (occurrence: GB)
  Receive Date: 20240202
  Receipt Date: 20240202
  Transmission Date: 20240410
  Serious: Yes (Other)
  Sender: FDA-Public Use
  Company Number: None

PATIENT
  Age: 2 Month
  Sex: Male
  Weight: 90 kg

DRUGS (8)
  1. GABAPENTIN [Suspect]
     Active Substance: GABAPENTIN
     Indication: Dizziness
     Dosage: TIME INTERVAL: 0.33333333 DAYS
     Route: 048
     Dates: start: 20240108
  2. GABAPENTIN [Suspect]
     Active Substance: GABAPENTIN
     Indication: Dizziness
     Dosage: TIME INTERVAL: 0.33333333 DAYS
     Route: 048
     Dates: start: 20240116
  3. GABAPENTIN [Suspect]
     Active Substance: GABAPENTIN
     Indication: Dizziness
     Route: 065
     Dates: start: 20240116, end: 20240116
  4. SIMVASTATIN [Concomitant]
     Active Substance: SIMVASTATIN
     Indication: Ill-defined disorder
     Dosage: TAKE ONE AT NIGHT
     Dates: start: 20231016
  5. PREGABALIN [Concomitant]
     Active Substance: PREGABALIN
     Indication: Ill-defined disorder
     Dosage: TAKE ONE TWICE DAILY, DURATION: 1 DAYS
     Dates: start: 20240116, end: 20240116
  6. DOXAZOSIN [Concomitant]
     Active Substance: DOXAZOSIN MESYLATE
     Indication: Ill-defined disorder
     Dosage: TAKE ONE DAILY
     Dates: start: 20231016
  7. BENZYDAMINE HYDROCHLORIDE [Concomitant]
     Active Substance: BENZYDAMINE HYDROCHLORIDE
     Indication: Ill-defined disorder
     Dosage: USE EVERY 3 HRS, DURATION: 5 DAYS
     Dates: start: 20240111, end: 20240116
  8. CLOPIDOGREL [Concomitant]
     Active Substance: CLOPIDOGREL BISULFATE
     Indication: Ill-defined disorder
     Dosage: TAKE ONE ONCE DAILY
     Dates: start: 20231016

REACTIONS (3)
  - Dizziness [Recovered/Resolved]
  - Confusional state [Unknown]
  - Pyrexia [Unknown]

NARRATIVE: CASE EVENT DATE: 20240116
